FAERS Safety Report 13680764 (Version 1)
Quarter: 2017Q2

REPORT INFORMATION
  Report Type: Spontaneous
  Country: US (occurrence: US)
  Receive Date: 20170622
  Receipt Date: 20170622
  Transmission Date: 20170830
  Serious: Yes (Life-Threatening)
  Sender: FDA-Public Use
  Company Number: None

PATIENT
  Age: 83 Year
  Sex: Male
  Weight: 68.6 kg

DRUGS (1)
  1. HYDROCHLOROTHIAZIDE/LISINOPRIL [Suspect]
     Active Substance: HYDROCHLOROTHIAZIDE\LISINOPRIL
     Indication: HYPERTENSION
     Route: 048
     Dates: start: 20100726, end: 20160730

REACTIONS (4)
  - Dysphagia [None]
  - Dysphonia [None]
  - Sleep disorder due to general medical condition, insomnia type [None]
  - Angioedema [None]

NARRATIVE: CASE EVENT DATE: 20160729
